FAERS Safety Report 10565886 (Version 1)
Quarter: 2014Q4

REPORT INFORMATION
  Report Type: Spontaneous
  Country: IT (occurrence: IT)
  Receive Date: 20141105
  Receipt Date: 20141105
  Transmission Date: 20150529
  Serious: Yes (Hospitalization)
  Sender: FDA-Public Use
  Company Number: IT-TEVA-518619ISR

PATIENT
  Age: 80 Year
  Sex: Female
  Weight: 55 kg

DRUGS (4)
  1. ALPRAZOLAM. [Suspect]
     Active Substance: ALPRAZOLAM
     Indication: DEPRESSION
     Dosage: .37 MG DAILY
     Route: 048
  2. PROZIN//CHLORPROMAZINE HYDROCHLORIDE [Interacting]
     Active Substance: CHLORPROMAZINE HYDROCHLORIDE
     Indication: DEPRESSION
     Dosage: 40 MG DAILY
     Route: 048
  3. CONTRAMAL - 100 MG/ML GOCCE ORALI, SOLUZIONE - GRUNETHAL ITALIA S.R.L. [Interacting]
     Active Substance: TRAMADOL HYDROCHLORIDE
     Indication: TENDONITIS
     Dosage: 20 DROPS FOR 3 DAYS-ORAL DROPS, SOLUTION
     Route: 048
  4. ALPRAZOLAM. [Interacting]
     Active Substance: ALPRAZOLAM
     Indication: DEPRESSION
     Dosage: .5 MG DAILY
     Route: 048

REACTIONS (2)
  - Lethargy [Recovered/Resolved]
  - Drug interaction [Unknown]

NARRATIVE: CASE EVENT DATE: 20140330
